FAERS Safety Report 8429643-5 (Version None)
Quarter: 2012Q2

REPORT INFORMATION
  Report Type: 
  Country: None (occurrence: None)
  Receive Date: 20120323
  Receipt Date: 20110222
  Transmission Date: 20120825
  Serious: Yes (Other)
  Sender: FDA-Public Use
  Company Number: 163-21880-11022718

PATIENT
  Age: 67 Year
  Sex: Male

DRUGS (3)
  1. LEVOTHYROXINE SODIUM [Concomitant]
  2. REVLIMID [Suspect]
     Indication: MULTIPLE MYELOMA
     Dosage: 25 MG, 21, PO
     Route: 048
     Dates: start: 20101209
  3. TAMSULIN HCL (TAMSULOSIN HYDROCHLORIDE) [Concomitant]

REACTIONS (1)
  - PNEUMONIA [None]
